FAERS Safety Report 17504770 (Version 5)
Quarter: 2021Q1

REPORT INFORMATION
  Report Type: Report from Study
  Country: JP (occurrence: JP)
  Receive Date: 20200305
  Receipt Date: 20210312
  Transmission Date: 20210419
  Serious: Yes (Death, Hospitalization)
  Sender: FDA-Public Use
  Company Number: JP-ROCHE-2559585

PATIENT
  Age: 33 Year
  Sex: Female
  Weight: 63.75 kg

DRUGS (11)
  1. CARBOPLATIN. [Suspect]
     Active Substance: CARBOPLATIN
     Indication: MALIGNANT PERITONEAL NEOPLASM
     Dosage: ON 11/JAN/2019 MOST RECENT DOSE (857 MG) OF CARBOPLATIN PRIOR TO AE ONSET WAS RECEIVED.?CARBOPLATIN
     Route: 042
     Dates: start: 20180815
  2. LOXOMARIN [Concomitant]
     Active Substance: LOXOPROFEN
     Indication: HEADACHE
  3. LOXOMARIN [Concomitant]
     Active Substance: LOXOPROFEN
     Indication: ABDOMINAL PAIN
  4. REBAMIPIDE [Concomitant]
     Active Substance: REBAMIPIDE
     Dates: start: 20191003, end: 20191005
  5. ANTEBATE [Concomitant]
     Active Substance: BETAMETHASONE DIPROPIONATE
     Indication: ECZEMA
     Route: 061
     Dates: start: 20190309
  6. ATEZOLIZUMAB. [Suspect]
     Active Substance: ATEZOLIZUMAB
     Indication: MALIGNANT PERITONEAL NEOPLASM
     Dosage: ON 18/SEP/2019 MOST RECENT DOSE OF ATEZOLIZUMAB PRIOR TO AE ONSET WAS RECEIVED.
     Route: 042
     Dates: start: 20180815
  7. PACLITAXEL. [Suspect]
     Active Substance: PACLITAXEL
     Indication: MALIGNANT PERITONEAL NEOPLASM
     Dosage: ON 11/JAN/2019 MOST RECENT DOSE (275 MG) OF PACLITAXEL PRIOR TO AE ONSET WAS RECEIVED.?PACLITAXEL 17
     Route: 042
     Dates: start: 20180815
  8. TEPRENONE TOWA [Concomitant]
     Indication: GASTRIC ULCER
  9. LEVOFLOXACIN. [Concomitant]
     Active Substance: LEVOFLOXACIN
     Indication: PYREXIA
     Dates: start: 20181214
  10. BEVACIZUMAB. [Suspect]
     Active Substance: BEVACIZUMAB
     Indication: MALIGNANT PERITONEAL NEOPLASM
     Dosage: ON 18/SEP/2019 MOST RECENT DOSE (948 MG) OF BEVACIZUMAB PRIOR TO AE ONSET WAS RECEIVED.?BEVACIZUMAB
     Route: 042
     Dates: start: 20180905
  11. LOXOPROFEN [Concomitant]
     Active Substance: LOXOPROFEN
     Indication: HEADACHE
     Dates: start: 20191003, end: 20191005

REACTIONS (1)
  - Immune thrombocytopenia [Not Recovered/Not Resolved]

NARRATIVE: CASE EVENT DATE: 20191028
